FAERS Safety Report 10155934 (Version 2)
Quarter: 2014Q2

REPORT INFORMATION
  Report Type: Spontaneous
  Country: GB (occurrence: GB)
  Receive Date: 20140506
  Receipt Date: 20140521
  Transmission Date: 20141212
  Serious: Yes (Disabling, Congenital Anomaly)
  Sender: FDA-Public Use
  Company Number: GB-MYLANLABS-2014S1009555

PATIENT
  Sex: Female
  Weight: 12.6 kg

DRUGS (1)
  1. FLUOXETINE [Suspect]
     Indication: DEPRESSION
     Route: 064
     Dates: end: 201101

REACTIONS (6)
  - Dysmorphism [Not Recovered/Not Resolved]
  - Limb malformation [Not Recovered/Not Resolved]
  - Exposure during pregnancy [Not Recovered/Not Resolved]
  - Low birth weight baby [Unknown]
  - Head deformity [Not Recovered/Not Resolved]
  - Neck deformity [Not Recovered/Not Resolved]
